FAERS Safety Report 25976158 (Version 1)
Quarter: 2025Q4

REPORT INFORMATION
  Report Type: Spontaneous
  Country: US (occurrence: None)
  Receive Date: 20251029
  Receipt Date: 20251029
  Transmission Date: 20260117
  Serious: Yes (Hospitalization, Other)
  Sender: FDA-CTU
  Company Number: None

PATIENT
  Age: 44 Year
  Sex: Female
  Weight: 65 kg

DRUGS (2)
  1. HECTOROL [Suspect]
     Active Substance: DOXERCALCIFEROL
     Indication: Hyperparathyroidism secondary
     Dosage: OTHER FREQUENCY : 2 TIMES A WEEK;?
     Route: 040
     Dates: start: 20251017, end: 20251024
  2. MIRCERA [Concomitant]
     Active Substance: METHOXY POLYETHYLENE GLYCOL-EPOETIN BETA
     Dosage: OTHER FREQUENCY : 2 TIMES A WEEK;?
     Route: 040
     Dates: start: 20251017, end: 20251024

REACTIONS (8)
  - Dialysis [None]
  - Restlessness [None]
  - Flushing [None]
  - Hyperhidrosis [None]
  - Therapy interrupted [None]
  - Heart rate increased [None]
  - Respiratory rate increased [None]
  - Drug hypersensitivity [None]

NARRATIVE: CASE EVENT DATE: 20251024
